FAERS Safety Report 8466513-0 (Version None)
Quarter: 2012Q2

REPORT INFORMATION
  Report Type: 
  Country: None (occurrence: None)
  Receive Date: 20120626
  Receipt Date: 20120620
  Transmission Date: 20120825
  Serious: Yes (Hospitalization)
  Sender: FDA-Public Use
  Company Number: US-ACTELION-A-NJ2012-64215

PATIENT

DRUGS (4)
  1. TRACLEER [Suspect]
     Indication: PULMONARY ARTERIAL HYPERTENSION
     Dosage: UNK
     Route: 048
     Dates: start: 20111125
  2. OXYGEN [Concomitant]
  3. VENTAVIS [Suspect]
     Indication: PULMONARY ARTERIAL HYPERTENSION
     Dosage: UNK
     Route: 055
     Dates: start: 20120203
  4. CALCIUM CHANNEL BLOCKERS [Concomitant]

REACTIONS (5)
  - DYSPNOEA [None]
  - BURNING SENSATION MUCOSAL [None]
  - NASAL CONGESTION [None]
  - OROPHARYNGEAL PAIN [None]
  - COUGH [None]
